FAERS Safety Report 9661789 (Version 2)
Quarter: 2013Q4

REPORT INFORMATION
  Report Type: Spontaneous
  Country: US (occurrence: US)
  Receive Date: 20131031
  Receipt Date: 20131031
  Transmission Date: 20140711
  Serious: No
  Sender: FDA-Public Use
  Company Number: US-PURDUE-USA-2010-0048307

PATIENT
  Age: 60 Year
  Sex: Male

DRUGS (2)
  1. OXYCONTIN (NDA 22-272) [Suspect]
     Indication: CANCER PAIN
     Dosage: 80 MG, BID
     Dates: start: 20100922, end: 20100928
  2. PERCOCET                           /00446701/ [Concomitant]
     Indication: BREAKTHROUGH PAIN

REACTIONS (5)
  - Abdominal pain [Recovered/Resolved]
  - Nausea [Recovered/Resolved]
  - Diarrhoea [Recovered/Resolved]
  - Inadequate analgesia [Recovered/Resolved]
  - Vomiting [Recovered/Resolved]
